FAERS Safety Report 16844679 (Version 1)
Quarter: 2019Q3

REPORT INFORMATION
  Report Type: Spontaneous
  Country: NZ (occurrence: NZ)
  Receive Date: 20190924
  Receipt Date: 20190924
  Transmission Date: 20191005
  Serious: Yes (Other)
  Sender: FDA-Public Use
  Company Number: PHHY2019NZ217675

PATIENT

DRUGS (1)
  1. PARACETAMOL [Suspect]
     Active Substance: ACETAMINOPHEN
     Indication: PRODUCT USED FOR UNKNOWN INDICATION
     Dosage: DRUG DOSED WITH TABLESPOON
     Route: 065

REACTIONS (3)
  - Acute hepatic failure [Unknown]
  - Incorrect dose administered [Unknown]
  - Overdose [Unknown]
